FAERS Safety Report 4872524-4 (Version None)
Quarter: 2005Q4

REPORT INFORMATION
  Report Type: 
  Country: None (occurrence: None)
  Receive Date: 20051230
  Receipt Date: 20051230
  Transmission Date: 20060501
  Serious: Yes (Death)
  Sender: FDA-Public Use
  Company Number: None

PATIENT
  Age: 52 Year
  Sex: Male
  Weight: 102 kg

DRUGS (1)
  1. DROTRECOGIN ALFA [Suspect]
     Indication: ESCHERICHIA SEPSIS
     Dosage: 24 MCG/KG/HR IV DRIP
     Route: 041
     Dates: start: 20051121, end: 20051122

REACTIONS (2)
  - CEREBELLAR HAEMORRHAGE [None]
  - EPISTAXIS [None]
